FAERS Safety Report 13610823 (Version 4)
Quarter: 2018Q3

REPORT INFORMATION
  Report Type: Report from Study
  Country: TW (occurrence: TW)
  Receive Date: 20170605
  Receipt Date: 20180724
  Transmission Date: 20181010
  Serious: Yes (Death, Life-Threatening, Hospitalization, Other)
  Sender: FDA-Public Use
  Company Number: PHHY2017TW057194

PATIENT
  Age: 68 Year
  Sex: Male
  Weight: 56.8 kg

DRUGS (37)
  1. AZACITIDINE. [Concomitant]
     Active Substance: AZACITIDINE
     Dosage: 100 MG, UNK
     Route: 042
     Dates: start: 20170216, end: 20170217
  2. EXJADE [Suspect]
     Active Substance: DEFERASIROX
     Indication: MYELODYSPLASTIC SYNDROME TRANSFORMATION
     Dosage: 7 MG, QD
     Route: 048
     Dates: start: 20160826, end: 20170330
  3. AZACITIDINE. [Concomitant]
     Active Substance: AZACITIDINE
     Indication: THROMBOCYTOSIS
     Dosage: 100 MG, UNK
     Route: 042
     Dates: start: 20161114, end: 20161118
  4. AZACITIDINE. [Concomitant]
     Active Substance: AZACITIDINE
     Dosage: 100 MG, UNK
     Route: 042
     Dates: start: 20161219, end: 20161223
  5. DIPHENHYDRAMINE HCL [Concomitant]
     Active Substance: DIPHENHYDRAMINE HYDROCHLORIDE
     Dosage: 30 MG, UNK
     Route: 042
     Dates: start: 20170420, end: 20170420
  6. DIPHENHYDRAMINE HCL [Concomitant]
     Active Substance: DIPHENHYDRAMINE HYDROCHLORIDE
     Dosage: 30 MG, UNK
     Route: 042
     Dates: start: 20170530, end: 20170530
  7. FUROSEMIDE. [Concomitant]
     Active Substance: FUROSEMIDE
     Dosage: 20 MG, UNK
     Route: 042
     Dates: start: 20170530, end: 20170530
  8. METOCLOPRAMIDE. [Concomitant]
     Active Substance: METOCLOPRAMIDE
     Dosage: 30 MG, UNK
     Route: 048
     Dates: start: 20170116, end: 20170120
  9. THYROXINE SODIUM [Concomitant]
     Active Substance: LEVOTHYROXINE SODIUM
     Dosage: 0.2 MG, UNK
     Route: 048
     Dates: start: 20170530
  10. AZACITIDINE. [Concomitant]
     Active Substance: AZACITIDINE
     Indication: MYELODYSPLASTIC SYNDROME
     Dosage: 100 MG, UNK
     Route: 042
     Dates: start: 20160929, end: 20160930
  11. AZACITIDINE. [Concomitant]
     Active Substance: AZACITIDINE
     Indication: ANAEMIA
     Dosage: 100 MG, UNK
     Route: 042
     Dates: start: 20161003, end: 20161007
  12. AZACITIDINE. [Concomitant]
     Active Substance: AZACITIDINE
     Dosage: 100 MG, UNK
     Route: 042
     Dates: start: 20170116, end: 20170120
  13. AZACITIDINE. [Concomitant]
     Active Substance: AZACITIDINE
     Dosage: 100 MG, UNK
     Route: 042
     Dates: start: 20170123, end: 20170124
  14. AZACITIDINE. [Concomitant]
     Active Substance: AZACITIDINE
     Dosage: 100 MG, UNK
     Route: 042
     Dates: start: 20170220, end: 20170224
  15. METOCLOPRAMIDE. [Concomitant]
     Active Substance: METOCLOPRAMIDE
     Dosage: 30 MG, UNK
     Route: 048
     Dates: start: 20161003, end: 20161007
  16. AMLODIPINE [Concomitant]
     Active Substance: AMLODIPINE BESYLATE
     Indication: HYPERTENSION
     Dosage: 5 MG, UNK
     Route: 048
     Dates: end: 20170308
  17. DIPHENHYDRAMINE HCL [Concomitant]
     Active Substance: DIPHENHYDRAMINE HYDROCHLORIDE
     Dosage: 30 MG, UNK
     Route: 042
     Dates: start: 20170417, end: 20170417
  18. METOCLOPRAMIDE. [Concomitant]
     Active Substance: METOCLOPRAMIDE
     Dosage: 30 MG, UNK
     Route: 048
     Dates: start: 20161114, end: 20161118
  19. METOCLOPRAMIDE. [Concomitant]
     Active Substance: METOCLOPRAMIDE
     Dosage: 30 MG, UNK
     Route: 048
     Dates: start: 20161121, end: 20161122
  20. AZACITIDINE. [Concomitant]
     Active Substance: AZACITIDINE
     Dosage: UNK
     Route: 065
     Dates: start: 20170330, end: 20170413
  21. TENOFOVIR [Concomitant]
     Active Substance: TENOFOVIR
     Indication: HEPATITIS B
     Dosage: 300 MG, UNK
     Route: 048
     Dates: start: 20160812, end: 20170222
  22. MANITOL [Concomitant]
     Active Substance: MANNITOL
     Indication: PRODUCT USED FOR UNKNOWN INDICATION
     Dosage: 150 ML, UNK
     Route: 042
     Dates: start: 20170530, end: 20170530
  23. EXJADE [Suspect]
     Active Substance: DEFERASIROX
     Indication: MYELODYSPLASTIC SYNDROME
  24. AZACITIDINE. [Concomitant]
     Active Substance: AZACITIDINE
     Dosage: 100 MG, UNK
     Route: 042
     Dates: start: 20161226, end: 20161227
  25. DIPHENHYDRAMINE HCL [Concomitant]
     Active Substance: DIPHENHYDRAMINE HYDROCHLORIDE
     Indication: PROPHYLAXIS
     Dosage: 30 MG, UNK
     Route: 042
     Dates: start: 20170413, end: 20170413
  26. FUROSEMIDE. [Concomitant]
     Active Substance: FUROSEMIDE
     Indication: PROPHYLAXIS
     Dosage: 20 MG, UNK
     Route: 042
     Dates: start: 20170424, end: 20170424
  27. METOCLOPRAMIDE. [Concomitant]
     Active Substance: METOCLOPRAMIDE
     Dosage: 30 MG, UNK
     Route: 048
     Dates: start: 20170123, end: 20170124
  28. METOCLOPRAMIDE. [Concomitant]
     Active Substance: METOCLOPRAMIDE
     Dosage: 30 MG, UNK
     Route: 048
     Dates: start: 20170220, end: 20170224
  29. ENTECAVIR. [Concomitant]
     Active Substance: ENTECAVIR
     Indication: HEPATITIS B
     Dosage: UNK
     Route: 065
     Dates: start: 201109
  30. BUMETANIDE. [Concomitant]
     Active Substance: BUMETANIDE
     Indication: PRODUCT USED FOR UNKNOWN INDICATION
     Dosage: 0.5 MG, UNK
     Route: 042
     Dates: start: 20170425, end: 20170425
  31. METOCLOPRAMIDE. [Concomitant]
     Active Substance: METOCLOPRAMIDE
     Indication: PROPHYLAXIS OF NAUSEA AND VOMITING
     Dosage: 30 MG, UNK
     Route: 048
     Dates: start: 20160929, end: 20160929
  32. METOCLOPRAMIDE. [Concomitant]
     Active Substance: METOCLOPRAMIDE
     Dosage: 30 MG, UNK
     Route: 048
     Dates: start: 20161219, end: 20161223
  33. METOCLOPRAMIDE. [Concomitant]
     Active Substance: METOCLOPRAMIDE
     Dosage: 30 MG, UNK
     Route: 048
     Dates: start: 20170216, end: 20170217
  34. THYROXINE SODIUM [Concomitant]
     Active Substance: LEVOTHYROXINE SODIUM
     Indication: HYPERTHYROIDISM
     Dosage: 0.2 MG, UNK
     Route: 048
     Dates: start: 20140305, end: 20170308
  35. EXJADE [Suspect]
     Active Substance: DEFERASIROX
     Indication: MYELOFIBROSIS
  36. AZACITIDINE. [Concomitant]
     Active Substance: AZACITIDINE
     Dosage: 100 MG, UNK
     Route: 042
     Dates: start: 20161121, end: 20161121
  37. METOCLOPRAMIDE. [Concomitant]
     Active Substance: METOCLOPRAMIDE
     Dosage: 30 MG, UNK
     Route: 048
     Dates: start: 20161226, end: 20161227

REACTIONS (49)
  - Escherichia sepsis [Unknown]
  - Pneumonia [Not Recovered/Not Resolved]
  - Cough [Recovered/Resolved]
  - Acute kidney injury [Unknown]
  - Abscess soft tissue [Unknown]
  - Hypocalcaemia [Recovered/Resolved]
  - Haemoptysis [Recovered/Resolved]
  - Fungal infection [Not Recovered/Not Resolved]
  - Pyrexia [Not Recovered/Not Resolved]
  - Exostosis [Not Recovered/Not Resolved]
  - Delirium [Unknown]
  - Pulmonary oedema [Unknown]
  - Oedema peripheral [Recovered/Resolved]
  - Hypocalcaemia [Recovered/Resolved]
  - Hypoalbuminaemia [Unknown]
  - Gastrointestinal infection [Unknown]
  - Septic shock [Unknown]
  - Hepatic cirrhosis [Unknown]
  - Hypocalcaemia [Recovered/Resolved]
  - Abdominal distension [Unknown]
  - Hypokalaemia [Recovered/Resolved]
  - Platelet count decreased [Recovered/Resolved]
  - Pancytopenia [Recovering/Resolving]
  - Spinal osteoarthritis [Not Recovered/Not Resolved]
  - Septic shock [Unknown]
  - Haemothorax [Unknown]
  - Respiratory distress [Recovered/Resolved]
  - Hypocalcaemia [Recovered/Resolved]
  - Lung infiltration [Not Recovered/Not Resolved]
  - Cardiac arrest [Unknown]
  - Anuria [Unknown]
  - Hyperkalaemia [Unknown]
  - Pleural effusion [Unknown]
  - Cough [Not Recovered/Not Resolved]
  - Dyspnoea [Recovered/Resolved]
  - Splenomegaly [Unknown]
  - Hypocalcaemia [Recovered/Resolved]
  - Hypocalcaemia [Not Recovered/Not Resolved]
  - Death [Fatal]
  - Malaise [Not Recovered/Not Resolved]
  - Lung consolidation [Not Recovered/Not Resolved]
  - Altered state of consciousness [Not Recovered/Not Resolved]
  - Aeromonas infection [Unknown]
  - Renal impairment [Unknown]
  - Thrombocytopenia [Unknown]
  - Mydriasis [Unknown]
  - Febrile neutropenia [Recovering/Resolving]
  - Systemic candida [Unknown]
  - White blood cell count decreased [Recovered/Resolved]

NARRATIVE: CASE EVENT DATE: 20161013
